FAERS Safety Report 4043226 (Version 4)
Quarter: 2013Q3

REPORT INFORMATION
  Report Type: Spontaneous
  Country: JP (occurrence: JP)
  Receive Date: 20031216
  Receipt Date: 20130924
  Transmission Date: 20140515
  Serious: Yes (Death, Hospitalization)
  Sender: FDA-Public Use
  Company Number: JP-GLAXOSMITHKLINE-B0310835A

PATIENT
  Age: 74 Year
  Sex: Female

DRUGS (19)
  1. ZYLORIC [Suspect]
     Indication: HYPERURICAEMIA
     Dosage: 200MG PER DAY
     Route: 048
     Dates: start: 20030907, end: 20030913
  2. TAGAMET [Suspect]
     Indication: GASTRITIS
     Dosage: 600MG PER DAY
     Route: 048
     Dates: start: 1997
  3. DICLOFENAC SODIUM [Suspect]
     Indication: SPINAL OSTEOARTHRITIS
     Route: 048
     Dates: start: 1997
  4. FUROSEMIDE [Suspect]
     Indication: CARDIAC FAILURE
     Dosage: 80MG PER DAY
     Route: 048
     Dates: start: 2001, end: 20030923
  5. ASPIRIN [Concomitant]
     Indication: MYOCARDIAL INFARCTION
     Dosage: 100MG PER DAY
     Route: 048
     Dates: start: 20030520, end: 20030923
  6. ISOSORBIDE DINITRATE [Concomitant]
     Indication: ANGINA PECTORIS
     Dosage: 60MG PER DAY
     Route: 048
     Dates: start: 1997
  7. NITROGLYCERIN [Concomitant]
     Indication: ANGINA PECTORIS
     Dosage: 25MG PER DAY
     Route: 050
     Dates: start: 1997
  8. METILDIGOXIN [Concomitant]
     Indication: CARDIAC FAILURE
     Dosage: 50G PER DAY
     Route: 048
     Dates: start: 20030826
  9. SPIRONOLACTONE [Concomitant]
     Indication: CARDIAC FAILURE
     Dosage: 50MG PER DAY
     Route: 048
     Dates: start: 20030701, end: 20030923
  10. CALCIUM L-ASPARTATE [Concomitant]
     Indication: OSTEOPOROSIS
     Dosage: 400MG PER DAY
     Route: 048
     Dates: start: 1997
  11. PL [Concomitant]
     Indication: BRONCHITIS CHRONIC
     Dosage: 3G PER DAY
     Route: 048
     Dates: start: 1998
  12. SERRAPEPTASE [Concomitant]
     Indication: LACERATION
     Dosage: 15MG PER DAY
     Route: 048
     Dates: start: 20030826, end: 20030909
  13. CEFDINIR [Concomitant]
     Indication: LACERATION
     Dosage: 300MG PER DAY
     Route: 048
     Dates: start: 20030826, end: 20030909
  14. DIGOXIN [Concomitant]
     Indication: CARDIAC FAILURE
     Dosage: 125MCG PER DAY
     Route: 048
     Dates: start: 1997, end: 20030816
  15. ASPIRIN DIALUMINATE [Concomitant]
     Indication: MYOCARDIAL INFARCTION
     Dosage: 81MG PER DAY
     Route: 048
     Dates: start: 1997, end: 20030519
  16. ENALAPRIL MALEATE [Concomitant]
     Indication: HYPERTENSION
     Dosage: 5MG PER DAY
     Route: 048
     Dates: start: 1997, end: 20030801
  17. PRAVASTATIN SODIUM [Concomitant]
     Indication: HYPERLIPIDAEMIA
     Dosage: 10MG PER DAY
     Route: 048
     Dates: start: 1997, end: 20030816
  18. MEDIGOXIN [Concomitant]
     Dates: end: 20030923
  19. INSULIN PENMIX 30 PENFILL [Concomitant]

REACTIONS (16)
  - Cardiac failure congestive [Fatal]
  - Stevens-Johnson syndrome [Not Recovered/Not Resolved]
  - Genital erosion [Not Recovered/Not Resolved]
  - Pain [Not Recovered/Not Resolved]
  - Erythema [Not Recovered/Not Resolved]
  - Oral pain [Unknown]
  - Skin exfoliation [Unknown]
  - Ulcer [Unknown]
  - Decubitus ulcer [Unknown]
  - Cyanosis [Unknown]
  - Skin discolouration [Unknown]
  - Necrosis [Unknown]
  - Respiratory arrest [Unknown]
  - Pruritus [Not Recovered/Not Resolved]
  - Corneal scar [Unknown]
  - Cellulitis [Unknown]
